FAERS Safety Report 5802777-7 (Version None)
Quarter: 2008Q3

REPORT INFORMATION
  Report Type: 
  Country: None (occurrence: None)
  Receive Date: 20080708
  Receipt Date: 20080627
  Transmission Date: 20090109
  Serious: Yes (Other)
  Sender: FDA-Public Use
  Company Number: CA-JNJFOC-20080605593

PATIENT
  Sex: Male
  Weight: 112 kg

DRUGS (1)
  1. REMICADE [Suspect]
     Indication: ANKYLOSING SPONDYLITIS
     Dosage: PATIENT HAS RECEIVED A TOTAL OF 18 DOSES.

REACTIONS (3)
  - ABDOMINAL PAIN [None]
  - BACK PAIN [None]
  - VOMITING [None]
